FAERS Safety Report 15433391 (Version 1)
Quarter: 2018Q3

REPORT INFORMATION
  Report Type: Spontaneous
  Country: US (occurrence: US)
  Receive Date: 20180921
  Receipt Date: 20180921
  Transmission Date: 20181010
  Serious: Yes (Other)
  Sender: FDA-Public Use
  Company Number: None

PATIENT
  Age: 60 Year
  Sex: Female
  Weight: 72 kg

DRUGS (11)
  1. VITAMIN C [Concomitant]
     Active Substance: ASCORBIC ACID
  2. ALPHA LIPOIC ACID [Concomitant]
     Active Substance: .ALPHA.-LIPOIC ACID
  3. CARVEDILOL, [Concomitant]
  4. B12/FOLATE, D, E, [Concomitant]
  5. TURMERIC/GINGER [Concomitant]
  6. LIOTHYRONINE [Concomitant]
     Active Substance: LIOTHYRONINE
  7. ATORVASTATIN [Suspect]
     Active Substance: ATORVASTATIN
     Indication: BLOOD CHOLESTEROL INCREASED
     Dosage: ?          QUANTITY:1 TABLET(S);?
     Route: 048
     Dates: start: 20170702, end: 20180810
  8. LUTEIN [Concomitant]
     Active Substance: LUTEIN
  9. OMEGO 3 FISH OI [Concomitant]
  10. METFORMIN [Concomitant]
     Active Substance: METFORMIN HYDROCHLORIDE
  11. COQ10, [Concomitant]

REACTIONS (3)
  - Memory impairment [None]
  - Cognitive disorder [None]
  - Therapy change [None]

NARRATIVE: CASE EVENT DATE: 20170702
